FAERS Safety Report 6383275-1 (Version None)
Quarter: 2009Q3

REPORT INFORMATION
  Report Type: 
  Country: None (occurrence: None)
  Receive Date: 20090929
  Receipt Date: 20090918
  Transmission Date: 20100115
  Serious: Yes (Hospitalization)
  Sender: FDA-Public Use
  Company Number: 2009AP003820

PATIENT
  Age: 94 Year
  Sex: Female

DRUGS (4)
  1. ALENDRONATE SODIUM [Suspect]
     Dosage: 70 MG; PO, 70 MG; TAB; PO
     Route: 048
  2. APO-QUETIAPINE (QUETIAPINE FUMARATE) [Suspect]
     Dosage: PO, TAB; PO
     Route: 048
  3. APO-ZOPICLONE (ZOPICLONE) [Suspect]
     Dosage: 7.5 MG; PO, 7.5 MG; TAB; PO
     Route: 048
  4. ACETAMINOPHEN [Suspect]

REACTIONS (2)
  - HYPERSENSITIVITY [None]
  - LIP SWELLING [None]
